FAERS Safety Report 4964797-4 (Version None)
Quarter: 2006Q2

REPORT INFORMATION
  Report Type: 
  Country: None (occurrence: None)
  Receive Date: 20060406
  Receipt Date: 19990507
  Transmission Date: 20061013
  Serious: Yes (Disabling)
  Sender: FDA-Public Use
  Company Number: US-ROCHE-205850

PATIENT
  Age: 47 Year
  Sex: Female

DRUGS (3)
  1. TORADOL [Suspect]
     Indication: NECK PAIN
     Route: 030
     Dates: start: 19990504, end: 19990504
  2. NORFLEX [Suspect]
     Indication: NECK PAIN
     Route: 030
     Dates: start: 19990504, end: 19990504
  3. TRANXENE [Concomitant]
     Route: 048

REACTIONS (20)
  - ALOPECIA [None]
  - CHEST PAIN [None]
  - CONSTIPATION [None]
  - DIFFICULTY IN WALKING [None]
  - DIZZINESS [None]
  - DYSPNOEA [None]
  - DYSURIA [None]
  - FAECAL INCONTINENCE [None]
  - HAEMATURIA [None]
  - HYPOAESTHESIA [None]
  - INJECTION SITE PAIN [None]
  - MUSCULAR WEAKNESS [None]
  - NAUSEA [None]
  - NERVOUSNESS [None]
  - PARAESTHESIA [None]
  - PARALYSIS [None]
  - RENAL HAEMORRHAGE [None]
  - RENAL PAIN [None]
  - TINNITUS [None]
  - URINARY INCONTINENCE [None]
